FAERS Safety Report 9442363 (Version 1)
Quarter: 2013Q3

REPORT INFORMATION
  Report Type: Spontaneous
  Country: US (occurrence: None)
  Receive Date: 20130805
  Receipt Date: 20130805
  Transmission Date: 20140515
  Serious: No
  Sender: FDA-Public Use
  Company Number: None

PATIENT
  Age: 79 None
  Sex: Male

DRUGS (4)
  1. ATROVASTATIN [Suspect]
     Indication: BLOOD CHOLESTEROL
     Route: 048
     Dates: start: 20130410
  2. ATENOLOL [Concomitant]
  3. OMEGA 3 [Concomitant]
  4. MULTIVITAMIN [Concomitant]

REACTIONS (5)
  - Depression [None]
  - Asthenia [None]
  - Blood cholesterol abnormal [None]
  - Activities of daily living impaired [None]
  - Apparent death [None]
